FAERS Safety Report 18874610 (Version 1)
Quarter: 2021Q1

REPORT INFORMATION
  Report Type: Not Available
  Country: US (occurrence: US)
  Receive Date: 20210211
  Receipt Date: 20210211
  Transmission Date: 20210420
  Serious: No
  Sender: FDA-Public Use
  Company Number: US-NEUROCRINE BIOSCIENCES INC.-2021NBI00470

PATIENT
  Age: 17 Year
  Sex: Male

DRUGS (3)
  1. INGREZZA [Suspect]
     Active Substance: VALBENAZINE
     Route: 048
     Dates: start: 20210120, end: 202101
  2. INGREZZA [Suspect]
     Active Substance: VALBENAZINE
     Indication: TARDIVE DYSKINESIA
     Route: 048
     Dates: start: 20210112, end: 20210119
  3. INGREZZA [Suspect]
     Active Substance: VALBENAZINE
     Dosage: UNKNOWN REDUCED DOSE AND DOSAGE REGIMEN
     Route: 048
     Dates: start: 202101

REACTIONS (2)
  - Sedation [Unknown]
  - Off label use [Unknown]

NARRATIVE: CASE EVENT DATE: 202101
